FAERS Safety Report 5792366-5 (Version None)
Quarter: 2008Q2

REPORT INFORMATION
  Report Type: 
  Country: None (occurrence: None)
  Receive Date: 20080623
  Receipt Date: 20080612
  Transmission Date: 20081010
  Serious: Yes (Hospitalization)
  Sender: FDA-Public Use
  Company Number: GXKR2008GB05459

PATIENT
  Age: 62 Year
  Sex: Male

DRUGS (4)
  1. CETIRIZINE (NGX) (CETIRIZINE) UNKNOWN [Suspect]
     Indication: PRURITUS
     Dosage: 10 MG, QD,; 25 MG,; 100 MG, ORAL
     Route: 048
     Dates: start: 20071107, end: 20071121
  2. CETIRIZINE (NGX) (CETIRIZINE) UNKNOWN [Suspect]
     Indication: PRURITUS
     Dosage: 10 MG, QD,; 25 MG,; 100 MG, ORAL
     Route: 048
     Dates: start: 20071115, end: 20071121
  3. ATARAX [Suspect]
     Indication: PRURITUS
     Dosage: 10 MG,
  4. ZOPICLONE (ZOPICLONE) [Concomitant]

REACTIONS (2)
  - CONDITION AGGRAVATED [None]
  - TRANSIENT ACANTHOLYTIC DERMATOSIS [None]
